FAERS Safety Report 13099493 (Version 3)
Quarter: 2017Q1

REPORT INFORMATION
  Report Type: Spontaneous
  Country: IT (occurrence: IT)
  Receive Date: 20170109
  Receipt Date: 20170210
  Transmission Date: 20170428
  Serious: Yes (Death, Other)
  Sender: FDA-Public Use
  Company Number: IT-AMGEN-ITASP2017002449

PATIENT
  Age: 64 Year
  Sex: Female

DRUGS (3)
  1. REMICADE [Suspect]
     Active Substance: INFLIXIMAB
     Indication: RHEUMATOID ARTHRITIS
     Dosage: 300 MG, MONTHLY
     Route: 042
     Dates: start: 20140326, end: 20160607
  2. ROACTEMRA [Suspect]
     Active Substance: TOCILIZUMAB
     Indication: RHEUMATOID ARTHRITIS
     Dosage: 400 MG, MONTHLY
     Route: 042
     Dates: start: 20131121, end: 20140212
  3. ENBREL [Suspect]
     Active Substance: ETANERCEPT
     Indication: RHEUMATOID ARTHRITIS
     Dosage: 50 MG, WEEKLY
     Route: 058
     Dates: start: 20050518, end: 20060202

REACTIONS (4)
  - Ovarian neoplasm [Fatal]
  - Disease progression [Fatal]
  - Lumbosacral radiculopathy [Unknown]
  - Bone cancer [Unknown]

NARRATIVE: CASE EVENT DATE: 20160801
